FAERS Safety Report 24527533 (Version 1)
Quarter: 2024Q4

REPORT INFORMATION
  Report Type: Spontaneous
  Country: US (occurrence: US)
  Receive Date: 20241021
  Receipt Date: 20241021
  Transmission Date: 20250114
  Serious: No
  Sender: KYOWA
  Company Number: US-KYOWAKIRIN-2024KK023287

PATIENT

DRUGS (1)
  1. CRYSVITA [Suspect]
     Active Substance: BUROSUMAB-TWZA
     Indication: Hereditary hypophosphataemic rickets
     Dosage: 5 MG, 1X/2 WEEKS (0.5 ML UNDER THE SKIN)
     Route: 058
     Dates: start: 202410

REACTIONS (6)
  - Swelling face [Unknown]
  - Arthropod bite [Unknown]
  - Drug hypersensitivity [Unknown]
  - Erythema [Unknown]
  - Rash [Unknown]
  - Product use issue [Unknown]

NARRATIVE: CASE EVENT DATE: 20241001
